FAERS Safety Report 4412365-5 (Version None)
Quarter: 2004Q3

REPORT INFORMATION
  Report Type: 
  Country: None (occurrence: None)
  Receive Date: 20040730
  Receipt Date: 20040723
  Transmission Date: 20050211
  Serious: Yes (Other)
  Sender: FDA-Public Use
  Company Number: JP-MERCK-0407USA02367

PATIENT
  Age: 78 Year
  Sex: Male

DRUGS (3)
  1. PRIMAXIN [Suspect]
     Indication: INFECTION
     Route: 041
     Dates: start: 20040722
  2. STRONGER NEO-MINOPHAGEN C [Concomitant]
     Route: 042
     Dates: start: 20040722
  3. ELECTROLYTES (UNSPECIFIED) AND SODIUM LACTATE [Concomitant]
     Route: 041
     Dates: start: 20040722

REACTIONS (3)
  - ASTHMA [None]
  - CONVULSION [None]
  - DEPRESSED LEVEL OF CONSCIOUSNESS [None]
